FAERS Safety Report 13340010 (Version 2)
Quarter: 2017Q2

REPORT INFORMATION
  Report Type: Spontaneous
  Country: US (occurrence: US)
  Receive Date: 20170316
  Receipt Date: 20170407
  Transmission Date: 20170830
  Serious: Yes (Other)
  Sender: FDA-Public Use
  Company Number: US-JNJCP-30000374552

PATIENT
  Sex: Female
  Weight: 50 kg

DRUGS (19)
  1. ACIDOPHILUS SUPPLEMENT BROBIOTIC [Concomitant]
     Indication: ROUTINE HEALTH MAINTENANCE
     Dosage: ONE PER DAY SINCE YEARS
  2. VITAMIN C [Concomitant]
     Active Substance: ASCORBIC ACID
     Indication: ROUTINE HEALTH MAINTENANCE
     Dosage: 500MG ONE PER DAY SINCE YEARS
  3. 100 MG OF CO Q 10 [Concomitant]
     Indication: ROUTINE HEALTH MAINTENANCE
     Dosage: 100MG ONE PER DAY SINCE YEARS
  4. CRAN ACTIN [Concomitant]
     Indication: CYSTITIS
     Dosage: TWO PER DAY SINCE YEARS
  5. HYDRO PLENISH [Concomitant]
     Dosage: ONE PER DAY SINCE YEARS
  6. BIOTIN [Concomitant]
     Active Substance: BIOTIN
     Dosage: ONE PER DAY SINCE YEARS
  7. CALCIUM CHEWS [Concomitant]
     Dosage: TWO PER DAY SINCE YEARS
  8. NEUTROGENA ULTRA SHEER DRY TOUCH SUNBLOCK SPF 100 PLUS [Suspect]
     Active Substance: AVOBENZONE\HOMOSALATE\OCTISALATE\OCTOCRYLENE\OXYBENZONE
     Indication: PROPHYLAXIS
     Dosage: NICKEL SIZED AMOUNT
     Route: 061
  9. MULTI-VITAMIN [Concomitant]
     Active Substance: .ALPHA.-TOCOPHEROL ACETATE, DL-\ASCORBIC ACID\CYANOCOBALAMIN\FLUORIDE ION\FOLIC ACID\NIACIN\PYRIDOXINE\RIBOFLAVIN\THIAMINE\VITAMIN A\VITAMIN D
     Indication: ROUTINE HEALTH MAINTENANCE
     Dosage: ONE PER DAY SINCE YEARS
  10. ZYRTEC [Concomitant]
     Active Substance: CETIRIZINE HYDROCHLORIDE
     Indication: SEASONAL ALLERGY
     Dosage: ONE PER DAY SINCE YEARS
  11. NEUTROGENA PURE AND FREE BABY SUNSCREEN BROAD SPECTRUM SPF60 PLUS PURESCREEN [Suspect]
     Active Substance: TITANIUM DIOXIDE\ZINC OXIDE
     Indication: PROPHYLAXIS
     Dosage: NICKEL SIZED AMOUNT DAILY
     Route: 061
  12. PREMARIN [Concomitant]
     Active Substance: ESTROGENS, CONJUGATED
     Dosage: SINCE YEARS
  13. UNSPECIFIED MAKE UP [Suspect]
     Active Substance: COSMETICS
     Indication: PRODUCT USED FOR UNKNOWN INDICATION
     Route: 061
  14. BABY ASPIRIN [Concomitant]
     Active Substance: ASPIRIN
     Indication: BLOOD CHOLESTEROL INCREASED
     Dosage: ONE PER DAY SINCE YEARS
  15. KRILL OIL [Concomitant]
     Active Substance: DIETARY SUPPLEMENT
     Indication: ROUTINE HEALTH MAINTENANCE
     Dosage: ONE PER DAY SINCE YEARS
  16. TUMERIC SUPREME [Concomitant]
     Indication: INFLAMMATION
     Dosage: TWO PER DAY SINCE YEARS
  17. NASACORT [Concomitant]
     Active Substance: TRIAMCINOLONE ACETONIDE
     Indication: SEASONAL ALLERGY
  18. BENADRYL (HELPS ME SLEEP) -- SEE SECONDARY [Concomitant]
     Indication: SEASONAL ALLERGY
     Dosage: ONE PER DAY SINCE YEARS
  19. NEUTROGENA AGE SHIELD FACE SPF 110 [Suspect]
     Active Substance: AVOBENZONE\HOMOSALATE\OCTISALATE\OCTOCRYLENE\OXYBENZONE
     Indication: PROPHYLAXIS
     Dosage: NICKEL SIZED AMOUNT
     Route: 061

REACTIONS (2)
  - Skin cancer [Recovered/Resolved]
  - Wrong technique in product usage process [Unknown]

NARRATIVE: CASE EVENT DATE: 2016
